FAERS Safety Report 9166325 (Version 1)
Quarter: 2013Q1

REPORT INFORMATION
  Report Type: Spontaneous
  Country: US (occurrence: US)
  Receive Date: 20130315
  Receipt Date: 20130315
  Transmission Date: 20140127
  Serious: No
  Sender: FDA-Public Use
  Company Number: US-B.I. PHARMACEUTICALS,INC./RIDGEFIELD-2013-BI-06798BP

PATIENT
  Age: 62 Year
  Sex: Female
  Weight: 150 kg

DRUGS (2)
  1. SPIRIVA [Suspect]
     Indication: CHRONIC OBSTRUCTIVE PULMONARY DISEASE
     Dosage: 18 MCG
     Route: 055
     Dates: start: 20130225
  2. THEOPHYLLINE [Concomitant]

REACTIONS (2)
  - Increased appetite [Not Recovered/Not Resolved]
  - Increased upper airway secretion [Not Recovered/Not Resolved]
